FAERS Safety Report 18544082 (Version 6)
Quarter: 2021Q2

REPORT INFORMATION
  Report Type: Report from Study
  Country: US (occurrence: US)
  Receive Date: 20201125
  Receipt Date: 20210623
  Transmission Date: 20210717
  Serious: No
  Sender: FDA-Public Use
  Company Number: NVSC2020US307720

PATIENT
  Age: 51 Year
  Sex: Female

DRUGS (3)
  1. COSENTYX [Suspect]
     Active Substance: SECUKINUMAB
     Indication: PSORIATIC ARTHROPATHY
     Dosage: 300 MG, ONCE EVRY 4 WEEKS
     Route: 058
     Dates: start: 20210312
  2. COSENTYX [Suspect]
     Active Substance: SECUKINUMAB
     Dosage: 300 MG, EVERY 4 WEEKS
     Route: 058
  3. COSENTYX [Suspect]
     Active Substance: SECUKINUMAB
     Indication: PSORIASIS
     Dosage: 300 MG (Q WEEKLY X 5 WEEKS THEN Q 4 WEEKS)
     Route: 058

REACTIONS (7)
  - Product dose omission issue [Recovering/Resolving]
  - COVID-19 [Recovering/Resolving]
  - Feeling abnormal [Recovering/Resolving]
  - Pruritus [Unknown]
  - Ill-defined disorder [Recovering/Resolving]
  - Psoriasis [Unknown]
  - Pain in extremity [Unknown]

NARRATIVE: CASE EVENT DATE: 202012
